FAERS Safety Report 7433474-2 (Version None)
Quarter: 2011Q2

REPORT INFORMATION
  Report Type: 
  Country: None (occurrence: None)
  Receive Date: 20110422
  Receipt Date: 20110412
  Transmission Date: 20111010
  Serious: Yes (Hospitalization)
  Sender: FDA-Public Use
  Company Number: CA-CELGENEUS-028-C5013-10090417

PATIENT
  Sex: Female
  Weight: 82.5 kg

DRUGS (11)
  1. MELPHALAN [Suspect]
     Indication: MULTIPLE MYELOMA
     Dosage: 8 MILLIGRAM
     Route: 065
     Dates: start: 20100302
  2. PREDNISONE [Suspect]
     Dosage: 165 MILLIGRAM
     Route: 065
     Dates: start: 20101016
  3. FLUID [Concomitant]
     Route: 051
     Dates: start: 20100901
  4. MELPHALAN [Suspect]
     Dosage: 8 MILLIGRAM
     Route: 065
     Dates: start: 20100804, end: 20100831
  5. PREDNISONE [Suspect]
     Indication: MULTIPLE MYELOMA
     Dosage: 170 MILLIGRAM
     Route: 065
     Dates: start: 20100302
  6. THALIDOMIDE [Suspect]
     Dosage: 100 MILLIGRAM
     Route: 048
     Dates: start: 20100913
  7. MELPHALAN [Suspect]
     Dosage: 8 MILLIGRAM
     Route: 065
     Dates: start: 20101016
  8. THALIDOMIDE [Suspect]
     Indication: MULTIPLE MYELOMA
     Dosage: 100 MILLIGRAM
     Route: 048
     Dates: start: 20100302
  9. THALIDOMIDE [Suspect]
     Dosage: 100 MILLIGRAM
     Route: 048
     Dates: start: 20100804, end: 20100831
  10. PREDNISONE [Suspect]
     Dosage: 165 MILLIGRAM
     Route: 065
     Dates: start: 20100804, end: 20100808
  11. DIURETICS [Concomitant]
     Route: 048

REACTIONS (1)
  - FALL [None]
